FAERS Safety Report 8845223 (Version 5)
Quarter: 2013Q2

REPORT INFORMATION
  Report Type: Spontaneous
  Country: JP (occurrence: None)
  Receive Date: 20121015
  Receipt Date: 20130411
  Transmission Date: 20140414
  Serious: Yes (Life-Threatening, Hospitalization)
  Sender: FDA-Public Use
  Company Number: AXC-2012-000396

PATIENT
  Age: 66 Year
  Sex: Male

DRUGS (2)
  1. URSODEOXYCHOLIC ACID [Suspect]
     Indication: ALCOHOLIC LIVER DISEASE
     Route: 048
     Dates: end: 20120806
  2. TEGRETOL [Suspect]
     Indication: EPILEPSY
     Route: 048
     Dates: end: 20120725

REACTIONS (2)
  - Drug eruption [None]
  - Lymphocyte stimulation test positive [None]
